FAERS Safety Report 25415699 (Version 1)
Quarter: 2025Q2

REPORT INFORMATION
  Report Type: Spontaneous
  Country: CN (occurrence: CN)
  Receive Date: 20250610
  Receipt Date: 20250610
  Transmission Date: 20250717
  Serious: Yes (Other)
  Sender: ALEXION PHARMACEUTICALS
  Company Number: CN-ASTRAZENECA-202506CHN002657CN

PATIENT
  Age: 49 Year
  Weight: 85 kg

DRUGS (1)
  1. CRESTOR [Suspect]
     Active Substance: ROSUVASTATIN CALCIUM
     Indication: Acute coronary syndrome
     Dosage: 10 MILLIGRAM, QD

REACTIONS (1)
  - Liver injury [Unknown]
